FAERS Safety Report 9259507 (Version 3)
Quarter: 2014Q1

REPORT INFORMATION
  Report Type: Spontaneous
  Country: US (occurrence: US)
  Receive Date: 20130428
  Receipt Date: 20140225
  Transmission Date: 20141002
  Serious: Yes (Death)
  Sender: FDA-Public Use
  Company Number: US-BRISTOL-MYERS SQUIBB COMPANY-18804153

PATIENT
  Age: 63 Year
  Sex: Male

DRUGS (16)
  1. BYETTA [Suspect]
     Dates: start: 2007, end: 201104
  2. ALLOPURINOL [Concomitant]
  3. ASPIRIN [Concomitant]
  4. LASIX [Concomitant]
  5. GABAPENTIN [Concomitant]
  6. GLYBURIDE [Concomitant]
  7. HYDROCODONE [Concomitant]
  8. LANTUS [Concomitant]
  9. METFORMIN [Concomitant]
  10. METOPROLOL [Concomitant]
  11. NUCYNTA [Concomitant]
  12. OMEPRAZOLE [Concomitant]
  13. ZOLOFT [Concomitant]
  14. VITAMIN B6 [Concomitant]
  15. VITAMIN E [Concomitant]
  16. VYTORIN [Concomitant]

REACTIONS (1)
  - Pancreatic carcinoma [Fatal]
